FAERS Safety Report 18166510 (Version 2)
Quarter: 2020Q3

REPORT INFORMATION
  Report Type: Spontaneous
  Country: US (occurrence: US)
  Receive Date: 20200819
  Receipt Date: 20200828
  Transmission Date: 20201103
  Serious: Yes (Hospitalization)
  Sender: FDA-Public Use
  Company Number: US-TEVA-2020-US-1815188

PATIENT
  Age: 33 Year
  Sex: Female

DRUGS (19)
  1. LORAZEPAM. [Suspect]
     Active Substance: LORAZEPAM
     Indication: ILEUS
     Route: 065
  2. QUETIAPINE. [Suspect]
     Active Substance: QUETIAPINE
     Indication: ILEUS
     Route: 065
  3. DIPHENHYDRAMINE. [Suspect]
     Active Substance: DIPHENHYDRAMINE
     Indication: ILEUS
     Route: 065
  4. CEFEPIME [Suspect]
     Active Substance: CEFEPIME HYDROCHLORIDE
     Indication: ILEUS
     Route: 065
  5. PHYTONADIONE. [Suspect]
     Active Substance: PHYTONADIONE
     Indication: ILEUS
     Route: 065
  6. HYDROMORPHONE [Suspect]
     Active Substance: HYDROMORPHONE
     Indication: PAIN MANAGEMENT
     Route: 065
  7. METRONIDAZOLE. [Suspect]
     Active Substance: METRONIDAZOLE
     Indication: ILEUS
     Route: 065
  8. FAMOTIDINE. [Suspect]
     Active Substance: FAMOTIDINE
     Indication: PAIN MANAGEMENT
     Route: 065
  9. ACETAMONIPHEN [Suspect]
     Active Substance: ACETAMINOPHEN
     Indication: PAIN MANAGEMENT
     Route: 065
  10. ONDANSETRON [Suspect]
     Active Substance: ONDANSETRON
     Indication: ILEUS
     Route: 065
  11. PANTOPRAZOLE [Suspect]
     Active Substance: PANTOPRAZOLE
     Indication: ILEUS
     Route: 065
  12. METHADONE [Suspect]
     Active Substance: METHADONE HYDROCHLORIDE
     Indication: DRUG WITHDRAWAL SYNDROME
     Dosage: 210 MILLIGRAM DAILY;
     Route: 065
  13. METHADONE [Suspect]
     Active Substance: METHADONE HYDROCHLORIDE
     Indication: DRUG WITHDRAWAL SYNDROME
     Route: 065
  14. KETOROLAC [Suspect]
     Active Substance: KETOROLAC TROMETHAMINE
     Indication: PAIN MANAGEMENT
     Route: 065
  15. CALCIUM GLUCONATE. [Suspect]
     Active Substance: CALCIUM GLUCONATE
     Indication: ILEUS
     Route: 065
  16. SUBUXONE [Suspect]
     Active Substance: BUPRENORPHINE HYDROCHLORIDE\NALOXONE HYDROCHLORIDE
     Indication: DRUG WITHDRAWAL SYNDROME
     Dosage: 8?2MG TABLET
     Route: 065
  17. IPRATROPIUM BROMIDE. [Suspect]
     Active Substance: IPRATROPIUM BROMIDE
     Indication: ILEUS
     Route: 065
  18. ALBUTEROL. [Concomitant]
     Active Substance: ALBUTEROL
     Indication: PRODUCT USED FOR UNKNOWN INDICATION
     Route: 065
  19. METHADONE [Suspect]
     Active Substance: METHADONE HYDROCHLORIDE
     Indication: DRUG WITHDRAWAL SYNDROME
     Route: 065

REACTIONS (12)
  - Confusional state [Recovered/Resolved]
  - Haematochezia [Recovered/Resolved]
  - Vomiting [Recovered/Resolved]
  - Haematemesis [Recovered/Resolved]
  - Small intestinal obstruction [Recovered/Resolved]
  - Large intestine perforation [Recovered/Resolved]
  - Faeces hard [Recovered/Resolved]
  - Gastrointestinal haemorrhage [Recovered/Resolved]
  - Acute abdomen [Recovered/Resolved]
  - Constipation [Recovered/Resolved]
  - Colitis ischaemic [Recovered/Resolved]
  - Mental status changes [Recovered/Resolved]
